FAERS Safety Report 6156155-4 (Version None)
Quarter: 2009Q2

REPORT INFORMATION
  Report Type: 
  Country: None (occurrence: None)
  Receive Date: 20090415
  Receipt Date: 20090407
  Transmission Date: 20091009
  Serious: Yes (Hospitalization)
  Sender: FDA-Public Use
  Company Number: PHHY2009CH13293

PATIENT
  Age: 60 Year
  Sex: Female

DRUGS (5)
  1. GLEEVEC [Suspect]
     Dosage: 400 MG/DAY
  2. DIOVAN HCT [Concomitant]
     Dosage: 80 MG/DAY
  3. ISOPTIN - SLOW RELEASE [Concomitant]
     Dosage: 120 MG, BID
  4. EUTHYROX [Concomitant]
     Dosage: 175 MCG/DAY
  5. CITALOPRAM HYDROBROMIDE [Concomitant]
     Dosage: 20 MG/DAY

REACTIONS (4)
  - BENIGN INTRACRANIAL HYPERTENSION [None]
  - LUMBAR PUNCTURE ABNORMAL [None]
  - NUCLEAR MAGNETIC RESONANCE IMAGING ABNORMAL [None]
  - VISION BLURRED [None]
